FAERS Safety Report 18794819 (Version 3)
Quarter: 2021Q3

REPORT INFORMATION
  Report Type: Report from Study
  Country: JP (occurrence: JP)
  Receive Date: 20210127
  Receipt Date: 20210713
  Transmission Date: 20211014
  Serious: Yes (Hospitalization, Other)
  Sender: FDA-Public Use
  Company Number: JP-ALNYLAM PHARMACEUTICALS, INC.-ALN-2020-000661

PATIENT

DRUGS (22)
  1. ONPATTRO [Suspect]
     Active Substance: PATISIRAN SODIUM
     Indication: AMYLOIDOSIS SENILE
  2. POLARAMINE [Concomitant]
     Active Substance: DEXCHLORPHENIRAMINE MALEATE
     Indication: PROPHYLAXIS
     Dosage: 5 MILLIGRAM, SINGLE
     Route: 041
     Dates: start: 20200410
  3. ELIQUIS [Concomitant]
     Active Substance: APIXABAN
     Indication: ATRIAL FIBRILLATION
  4. DOPS [Concomitant]
     Active Substance: DROXIDOPA
     Indication: HEREDITARY NEUROPATHIC AMYLOIDOSIS
     Dosage: 100 MILLIGRAM, BID
     Route: 065
  5. METHYCOBAL [Concomitant]
     Active Substance: METHYLCOBALAMIN
     Indication: HEREDITARY NEUROPATHIC AMYLOIDOSIS
     Dosage: 0.5 MILLIGRAM, TID
     Route: 065
  6. CALONAL [Concomitant]
     Active Substance: ACETAMINOPHEN
     Indication: PROPHYLAXIS
     Dosage: 500 MILLIGRAM, SINGLE
     Route: 048
     Dates: start: 20200410
  7. EPERISONE HYDROCHLORIDE [Concomitant]
     Active Substance: EPERISONE HYDROCHLORIDE
     Indication: AMYLOIDOSIS SENILE
  8. ONPATTRO [Suspect]
     Active Substance: PATISIRAN SODIUM
     Indication: HEREDITARY NEUROPATHIC AMYLOIDOSIS
     Dosage: 17.6 MILLIGRAM
     Route: 041
     Dates: start: 20200410, end: 20210115
  9. DOPS [Concomitant]
     Active Substance: DROXIDOPA
     Indication: AMYLOIDOSIS SENILE
  10. LYRICA [Concomitant]
     Active Substance: PREGABALIN
     Indication: HEREDITARY NEUROPATHIC AMYLOIDOSIS
     Dosage: 25 MILLIGRAM, QD
     Route: 065
  11. LASIX [Concomitant]
     Active Substance: FUROSEMIDE
     Indication: AMYLOIDOSIS SENILE
  12. NORMAL SALINE [Concomitant]
     Active Substance: SODIUM CHLORIDE
     Indication: PREMEDICATION
     Dosage: 50 MILLILITER
     Route: 041
     Dates: end: 20200501
  13. PANVITAN [Concomitant]
     Active Substance: VITAMINS
     Indication: PROPHYLAXIS
     Dosage: 1 GRAM, QD
     Route: 065
     Dates: start: 20200410
  14. LYRICA [Concomitant]
     Active Substance: PREGABALIN
     Indication: AMYLOIDOSIS SENILE
  15. ALDACTONE A [Concomitant]
     Active Substance: SPIRONOLACTONE
     Indication: HEREDITARY NEUROPATHIC AMYLOIDOSIS
     Dosage: 25 MILLIGRAM, QD
     Route: 065
  16. LASIX [Concomitant]
     Active Substance: FUROSEMIDE
     Indication: HEREDITARY NEUROPATHIC AMYLOIDOSIS
     Dosage: 40 MILLIGRAM, QD
     Route: 065
  17. FAMOTIDINE. [Concomitant]
     Active Substance: FAMOTIDINE
     Indication: PROPHYLAXIS
     Dosage: 20 MILLIGRAM, SINGLE
     Route: 041
     Dates: start: 20200410
  18. ELIQUIS [Concomitant]
     Active Substance: APIXABAN
     Indication: ANTICOAGULANT THERAPY
     Dosage: 2.5 MILLIGRAM, BID
     Route: 048
  19. EPERISONE HYDROCHLORIDE [Concomitant]
     Active Substance: EPERISONE HYDROCHLORIDE
     Indication: HEREDITARY NEUROPATHIC AMYLOIDOSIS
     Dosage: 50 MILLIGRAM, TID
     Route: 065
  20. DEXART [Concomitant]
     Active Substance: DEXAMETHASONE SODIUM PHOSPHATE
     Indication: PROPHYLAXIS
     Dosage: 9.9 MILLIGRAM, SINGLE
     Route: 041
     Dates: start: 20200410
  21. METHYCOBAL [Concomitant]
     Active Substance: METHYLCOBALAMIN
     Indication: AMYLOIDOSIS SENILE
  22. ALDACTONE A [Concomitant]
     Active Substance: SPIRONOLACTONE
     Indication: AMYLOIDOSIS SENILE

REACTIONS (7)
  - Infusion related reaction [Recovering/Resolving]
  - Back pain [Recovering/Resolving]
  - Cerebral haemorrhage [Recovered/Resolved with Sequelae]
  - Infusion related reaction [Recovering/Resolving]
  - Infusion related reaction [Recovering/Resolving]
  - Back pain [Recovering/Resolving]
  - Back pain [Recovering/Resolving]

NARRATIVE: CASE EVENT DATE: 20200501
